FAERS Safety Report 14432429 (Version 4)
Quarter: 2018Q1

REPORT INFORMATION
  Report Type: Report from Study
  Country: TR (occurrence: TR)
  Receive Date: 20180124
  Receipt Date: 20180323
  Transmission Date: 20180509
  Serious: Yes (Hospitalization)
  Sender: FDA-Public Use
  Company Number: TR-PFIZER INC-2018030225

PATIENT
  Age: 57 Year
  Sex: Female
  Weight: 94.2 kg

DRUGS (9)
  1. TAXOL [Suspect]
     Active Substance: PACLITAXEL
     Indication: NEOPLASM
     Dosage: 120  (UNSPECIFIED UNITS) WEEKLY
     Route: 042
     Dates: start: 20171205
  2. LANSOPRAZOL [Concomitant]
     Active Substance: LANSOPRAZOLE
     Indication: GASTRITIS PROPHYLAXIS
     Dosage: 30 MG, 1X/DAY
     Route: 048
     Dates: start: 20171130
  3. ENOXAPARINE [Concomitant]
     Active Substance: ENOXAPARIN
     Indication: THROMBOSIS PROPHYLAXIS
     Dosage: 0.4 ML, 2X/DAY
     Route: 058
     Dates: start: 20171130
  4. OLMESARTAN MEDOXOMIL. [Concomitant]
     Active Substance: OLMESARTAN MEDOXOMIL
     Indication: HYPERTENSION
     Dosage: 20 MG, 2X/DAY
     Route: 048
     Dates: start: 19810101
  5. CEFUROXIME. [Concomitant]
     Active Substance: CEFUROXIME
     Indication: ANTI-INFECTIVE THERAPY
     Dosage: 500 MG, 2X/DAY
     Route: 048
     Dates: start: 20171130
  6. PARACETAMOL [Concomitant]
     Active Substance: ACETAMINOPHEN
     Indication: PAIN
     Dosage: 500 MG, 2X/DAY
     Route: 048
     Dates: start: 20171130
  7. MEGESTROL ACETATE. [Concomitant]
     Active Substance: MEGESTROL ACETATE
     Indication: ANTI-INFECTIVE THERAPY
     Dosage: 160 MG, 3X/DAY
     Route: 048
     Dates: start: 20171218
  8. CARBOPLATIN. [Suspect]
     Active Substance: CARBOPLATIN
     Indication: NEOPLASM
     Dosage: 750 (UNSPECIFIED UNITS) ONCE EVERY 3 WEEKS
     Route: 042
     Dates: start: 20171205
  9. AVELUMAB [Suspect]
     Active Substance: AVELUMAB
     Indication: NEOPLASM
     Dosage: 850 (UNSPECIFIED UNITS) ONCE EVERY 3 WEEKS
     Route: 042
     Dates: start: 20171205, end: 20180212

REACTIONS (1)
  - Urinary tract infection [Recovered/Resolved]

NARRATIVE: CASE EVENT DATE: 20180117
